FAERS Safety Report 6139637-0 (Version None)
Quarter: 2009Q2

REPORT INFORMATION
  Report Type: 
  Country: None (occurrence: None)
  Receive Date: 20090401
  Receipt Date: 20090218
  Transmission Date: 20091009
  Serious: No
  Sender: FDA-Public Use
  Company Number: US-BAYER-200910642BCC

PATIENT
  Sex: Male

DRUGS (1)
  1. ALEVE-D SINUS + COLD [Suspect]
     Indication: NASOPHARYNGITIS
     Dosage: PACKAGE SIZE UNKNOWN
     Route: 048

REACTIONS (1)
  - NASOPHARYNGITIS [None]
